FAERS Safety Report 12520607 (Version 1)
Quarter: 2016Q3

REPORT INFORMATION
  Report Type: Other
  Country: GB (occurrence: GB)
  Receive Date: 20160701
  Receipt Date: 20160701
  Transmission Date: 20161109
  Serious: Yes (Other)
  Sender: FDA-Public Use
  Company Number: GB-LUPIN PHARMACEUTICALS INC.-E2B_00005707

PATIENT
  Age: 58 Year
  Sex: Male
  Weight: 96 kg

DRUGS (5)
  1. SIMVASTATIN. [Suspect]
     Active Substance: SIMVASTATIN
     Indication: BLOOD CHOLESTEROL INCREASED
     Route: 048
     Dates: end: 201411
  2. RAMIPRIL. [Concomitant]
     Active Substance: RAMIPRIL
     Indication: PRODUCT USED FOR UNKNOWN INDICATION
     Route: 065
  3. ATORVASTATIN [Suspect]
     Active Substance: ATORVASTATIN
     Indication: BLOOD CHOLESTEROL INCREASED
     Route: 048
  4. ATORVASTATIN [Suspect]
     Active Substance: ATORVASTATIN
     Route: 048
  5. SIMVASTATIN. [Suspect]
     Active Substance: SIMVASTATIN
     Route: 048
     Dates: start: 201411

REACTIONS (6)
  - Glucose tolerance impaired [Recovering/Resolving]
  - Mood altered [Recovering/Resolving]
  - Sexual dysfunction [Recovering/Resolving]
  - Neck pain [Recovering/Resolving]
  - Palpitations [Recovering/Resolving]
  - Libido disorder [Recovering/Resolving]
